FAERS Safety Report 23786265 (Version 3)
Quarter: 2024Q2

REPORT INFORMATION
  Report Type: Report from Study
  Country: US (occurrence: US)
  Receive Date: 20240426
  Receipt Date: 20240617
  Transmission Date: 20240716
  Serious: Yes (Hospitalization)
  Sender: FDA-Public Use
  Company Number: US-JNJFOC-20240461336

PATIENT
  Age: 41 Year
  Sex: Female

DRUGS (11)
  1. TREMFYA [Suspect]
     Active Substance: GUSELKUMAB
     Indication: Psoriasis
     Dosage: AT WEEK 0 AND WEEK 4, THEN EVERY 8 WEEKS THEREAFTER
     Route: 058
     Dates: start: 20240413
  2. TREMFYA [Suspect]
     Active Substance: GUSELKUMAB
     Indication: Psoriasis
     Dosage: AT WEEK 0 AND WEEK 4, THEN EVERY 8 WEEKS THEREAFTER
     Route: 058
  3. TREMFYA [Suspect]
     Active Substance: GUSELKUMAB
     Route: 058
  4. FLUCONAZOLE [Concomitant]
     Active Substance: FLUCONAZOLE
     Indication: Product used for unknown indication
  5. PHENTERMINE HYDROCHLORIDE [Concomitant]
     Active Substance: PHENTERMINE HYDROCHLORIDE
     Indication: Product used for unknown indication
  6. PIOGLITAZONE [Concomitant]
     Active Substance: PIOGLITAZONE
     Indication: Product used for unknown indication
  7. OMEPRAZOLE [Concomitant]
     Active Substance: DONEPEZIL HYDROCHLORIDE\OMEPRAZOLE\OMEPRAZOLE MAGNESIUM
  8. SYNJARDY [Concomitant]
     Active Substance: EMPAGLIFLOZIN\METFORMIN HYDROCHLORIDE
  9. ERGOCALCIFEROL [Concomitant]
     Active Substance: ERGOCALCIFEROL
  10. BUPROPION HYDROCHLORIDE [Concomitant]
     Active Substance: BUPROPION HYDROCHLORIDE
     Dosage: TABLET
  11. OTEZLA [Concomitant]
     Active Substance: APREMILAST

REACTIONS (3)
  - Influenza [Recovering/Resolving]
  - Chest pain [Recovering/Resolving]
  - Psoriasis [Unknown]

NARRATIVE: CASE EVENT DATE: 20240413
